FAERS Safety Report 23306027 (Version 1)
Quarter: 2023Q4

REPORT INFORMATION
  Report Type: Spontaneous
  Country: US (occurrence: US)
  Receive Date: 20231218
  Receipt Date: 20231218
  Transmission Date: 20240110
  Serious: No
  Sender: FDA-Public Use
  Company Number: US-CIPLA LTD.-2022US07129

PATIENT

DRUGS (1)
  1. BUDESONIDE [Suspect]
     Active Substance: BUDESONIDE
     Indication: Pneumonia respiratory syncytial viral
     Dosage: 0.5MG/2ML, QD
     Route: 065
     Dates: start: 20221123

REACTIONS (4)
  - Poor quality product administered [Unknown]
  - Liquid product physical issue [Unknown]
  - Product quality issue [Unknown]
  - Product cleaning inadequate [Unknown]

NARRATIVE: CASE EVENT DATE: 20221101
